FAERS Safety Report 12967725 (Version 1)
Quarter: 2016Q4

REPORT INFORMATION
  Report Type: Spontaneous
  Country: US (occurrence: US)
  Receive Date: 20161123
  Receipt Date: 20161123
  Transmission Date: 20170207
  Serious: No
  Sender: FDA-Public Use
  Company Number: US-TEVA-614802USA

PATIENT
  Age: 79 Year
  Sex: Female
  Weight: 66.74 kg

DRUGS (1)
  1. MUPIROCIN. [Suspect]
     Active Substance: MUPIROCIN
     Indication: INFECTION PROPHYLAXIS
     Dates: start: 20151127

REACTIONS (7)
  - Eczema [Unknown]
  - Deformity [Unknown]
  - Off label use [Unknown]
  - Pruritus [Unknown]
  - Product use issue [Unknown]
  - Insomnia [Unknown]
  - Eye swelling [Unknown]

NARRATIVE: CASE EVENT DATE: 20151128
